FAERS Safety Report 8845983 (Version 2)
Quarter: 2015Q2

REPORT INFORMATION
  Report Type: Report from Study
  Country: US (occurrence: US)
  Receive Date: 20121017
  Receipt Date: 20150427
  Transmission Date: 20150821
  Serious: Yes (Other)
  Sender: FDA-Public Use
  Company Number: US-ROCHE-1112174

PATIENT
  Age: 14 Year
  Sex: Male

DRUGS (3)
  1. NUTROPIN AQ [Suspect]
     Active Substance: SOMATROPIN
     Route: 058
  2. NUTROPIN AQ [Suspect]
     Active Substance: SOMATROPIN
     Indication: BODY HEIGHT BELOW NORMAL
     Route: 058
     Dates: start: 20070405
  3. NUTROPIN AQ [Suspect]
     Active Substance: SOMATROPIN
     Dosage: DOSE LOWERED
     Route: 058
     Dates: start: 200706

REACTIONS (8)
  - Oedema peripheral [Recovered/Resolved]
  - Headache [Recovered/Resolved]
  - Nausea [Unknown]
  - Pruritus [Recovered/Resolved]
  - Vomiting [Unknown]
  - Brain oedema [Unknown]
  - Benign intracranial hypertension [Unknown]
  - Overdose [Unknown]

NARRATIVE: CASE EVENT DATE: 20070405
